FAERS Safety Report 8550380-0 (Version None)
Quarter: 2012Q3

REPORT INFORMATION
  Report Type: 
  Country: None (occurrence: None)
  Receive Date: 20120730
  Receipt Date: 20120718
  Transmission Date: 20120928
  Serious: Yes (Hospitalization)
  Sender: FDA-Public Use
  Company Number: US-ELI_LILLY_AND_COMPANY-US201207006409

PATIENT
  Sex: Female

DRUGS (2)
  1. HUMALOG [Suspect]
     Indication: DIABETES MELLITUS
     Dosage: 18 U, PRN
     Dates: start: 20110101
  2. LANTUS [Concomitant]

REACTIONS (5)
  - NERVOUSNESS [None]
  - DRUG INEFFECTIVE [None]
  - FALL [None]
  - BLOOD GLUCOSE DECREASED [None]
  - FEELING JITTERY [None]
